FAERS Safety Report 9874451 (Version 2)
Quarter: 2014Q1

REPORT INFORMATION
  Report Type: Spontaneous
  Country: CA (occurrence: CA)
  Receive Date: 20140206
  Receipt Date: 20140224
  Transmission Date: 20141002
  Serious: Yes (Hospitalization)
  Sender: FDA-Public Use
  Company Number: CA-BIOGENIDEC-2014BI011116

PATIENT
  Age: 25 Year
  Sex: Female

DRUGS (1)
  1. TYSABRI [Suspect]
     Indication: MULTIPLE SCLEROSIS
     Route: 042
     Dates: start: 20110503, end: 20140114

REACTIONS (4)
  - Influenza [Unknown]
  - Post procedural swelling [Recovered/Resolved]
  - Post procedural infection [Recovered/Resolved]
  - Vaginal cyst [Recovered/Resolved]
